FAERS Safety Report 6133086-7 (Version None)
Quarter: 2009Q1

REPORT INFORMATION
  Report Type: 
  Country: None (occurrence: None)
  Receive Date: 20090325
  Receipt Date: 20090325
  Transmission Date: 20090719
  Serious: Yes (Hospitalization)
  Sender: FDA-Public Use
  Company Number: None

PATIENT
  Age: 78 Year
  Sex: Male
  Weight: 76 kg

DRUGS (4)
  1. ROCURONIUM BROMIDE [Suspect]
     Dosage: VIA CONTINUOUS DRIP IV DRIP
     Route: 041
     Dates: start: 20090213, end: 20090217
  2. METHYLPREDNISOLONE 4MG TAB [Suspect]
     Indication: CHRONIC OBSTRUCTIVE PULMONARY DISEASE
     Dosage: MULTIPLE IN TAPERING DOSE  IV
     Route: 042
     Dates: start: 20090210, end: 20090217
  3. METHYLPREDNISOLONE 4MG TAB [Suspect]
     Indication: RESPIRATORY FAILURE
     Dosage: MULTIPLE IN TAPERING DOSE  IV
     Route: 042
     Dates: start: 20090210, end: 20090217
  4. SOLU-MEDROL [Concomitant]

REACTIONS (6)
  - AREFLEXIA [None]
  - CEREBRAL CALCIFICATION [None]
  - COMA [None]
  - LOCKED-IN SYNDROME [None]
  - MICROANGIOPATHY [None]
  - PARALYSIS [None]
